APPROVED DRUG PRODUCT: LOCOID
Active Ingredient: HYDROCORTISONE BUTYRATE
Strength: 0.1%
Dosage Form/Route: LOTION;TOPICAL
Application: N022076 | Product #001
Applicant: BAUSCH HEALTH AMERICAS INC
Approved: May 18, 2007 | RLD: Yes | RS: No | Type: DISCN